FAERS Safety Report 6146673-7 (Version None)
Quarter: 2009Q2

REPORT INFORMATION
  Report Type: 
  Country: None (occurrence: None)
  Receive Date: 20090403
  Receipt Date: 20090324
  Transmission Date: 20091009
  Serious: Yes (Death)
  Sender: FDA-Public Use
  Company Number: 1000005306

PATIENT
  Age: 27 Year
  Sex: Male

DRUGS (4)
  1. LEXAPRO [Suspect]
  2. ZYPREXA [Suspect]
  3. FLUOXETINE [Suspect]
  4. KEMADRIN [Suspect]

REACTIONS (4)
  - ACCIDENTAL DEATH [None]
  - DRUG LEVEL INCREASED [None]
  - DRUG TOXICITY [None]
  - SKIN INJURY [None]
